FAERS Safety Report 4342525-3 (Version None)
Quarter: 2004Q2

REPORT INFORMATION
  Report Type: 
  Country: None (occurrence: None)
  Receive Date: 20040412
  Receipt Date: 20040326
  Transmission Date: 20050107
  Serious: Yes (Death)
  Sender: FDA-Public Use
  Company Number: 233681

PATIENT
  Age: 16 Year
  Sex: Male
  Weight: 65 kg

DRUGS (24)
  1. NOVOSEVEN [Suspect]
     Indication: HAEMOPHILIA A WITH ANTI FACTOR VIII
     Dosage: 7.2 MG X2, INTRAVENOUS
     Route: 042
     Dates: start: 20031023, end: 20031023
  2. NOVOSEVEN [Suspect]
     Indication: HAEMOPHILIA A WITH ANTI FACTOR VIII
     Dosage: 7.2 MG X4, INTRAVENOUS
     Route: 042
     Dates: start: 20031026, end: 20031026
  3. NOVOSEVEN [Suspect]
     Indication: HAEMOPHILIA A WITH ANTI FACTOR VIII
     Dosage: 7.2 MG X2, INTRAVENOUS
     Route: 042
     Dates: start: 20031027, end: 20031027
  4. NOVOSEVEN [Suspect]
     Indication: HAEMOPHILIA A WITH ANTI FACTOR VIII
     Dosage: 7.2 MG X 2, INTRAVENOUS
     Route: 042
     Dates: start: 20031027, end: 20031027
  5. NOVOSEVEN [Suspect]
     Indication: HAEMOPHILIA A WITH ANTI FACTOR VIII
     Dosage: 7.2 MG X 2, INTRAVENOUS
     Route: 042
     Dates: start: 20031027, end: 20031027
  6. NOVOSEVEN [Suspect]
     Indication: HAEMOPHILIA A WITH ANTI FACTOR VIII
     Dosage: 7.2 MG
     Dates: start: 20031027
  7. CLONIDINE [Concomitant]
  8. SENOKOT [Concomitant]
  9. DOCUSATE (DOCUSATE) [Concomitant]
  10. ONDASETRON (ONDASETRON) [Concomitant]
  11. ACETAMINOPHEN [Concomitant]
  12. MORPHINE [Concomitant]
  13. METHADONE (METHADONE) [Concomitant]
  14. HYDROMORPHONE HCL [Concomitant]
  15. NALMEFENE (NALMEFENE) [Concomitant]
  16. LORAZEPAM [Concomitant]
  17. HYDROXYZINE [Concomitant]
  18. FENTANYL [Concomitant]
  19. CEFUROXIME [Concomitant]
  20. CIPROFLOXACIN [Concomitant]
  21. OXACILLIN [Concomitant]
  22. VIOXX [Concomitant]
  23. BENADRYL [Concomitant]
  24. FEIBA(FACTOR V111 (ANTIHAEMOPHILIC FACTOR) [Concomitant]

REACTIONS (16)
  - ATELECTASIS [None]
  - BACTERAEMIA [None]
  - BILIRUBIN CONJUGATED INCREASED [None]
  - BLOOD CREATININE INCREASED [None]
  - DEEP VEIN THROMBOSIS [None]
  - DIFFUSE ALVEOLAR DAMAGE [None]
  - DISSEMINATED INTRAVASCULAR COAGULATION [None]
  - HYPOTENSION [None]
  - HYPOXIA [None]
  - LUNG CONSOLIDATION [None]
  - PLEURAL EFFUSION [None]
  - PNEUMONIA [None]
  - PULMONARY HAEMORRHAGE [None]
  - PURPURA [None]
  - SEPTIC EMBOLUS [None]
  - STAPHYLOCOCCAL SEPSIS [None]
